APPROVED DRUG PRODUCT: SODIUM PHENYLACETATE AND SODIUM BENZOATE
Active Ingredient: SODIUM BENZOATE; SODIUM PHENYLACETATE
Strength: 10%;10% (2GM/20ML; 2GM/20ML)
Dosage Form/Route: SOLUTION;INTRAVENOUS
Application: A217526 | Product #001 | TE Code: AP
Applicant: NAVINTA LLC
Approved: Jul 14, 2023 | RLD: No | RS: No | Type: RX